FAERS Safety Report 12778719 (Version 1)
Quarter: 2016Q3

REPORT INFORMATION
  Report Type: Spontaneous
  Country: GB (occurrence: GB)
  Receive Date: 20160926
  Receipt Date: 20160926
  Transmission Date: 20161109
  Serious: Yes (Life-Threatening, Hospitalization, Disabling)
  Sender: FDA-Public Use
  Company Number: GB-ACCORD-044242

PATIENT
  Age: 74 Year
  Sex: Female
  Weight: 44 kg

DRUGS (4)
  1. CALCICHEW D3 [Concomitant]
     Active Substance: CALCIUM\CHOLECALCIFEROL
  2. SIMVASTATIN. [Concomitant]
     Active Substance: SIMVASTATIN
  3. CAPECITABINE. [Suspect]
     Active Substance: CAPECITABINE
     Indication: RECTAL CANCER
     Dosage: 900MG/M2 SURFACE AREA
     Route: 048
     Dates: start: 20160512, end: 20160610
  4. TOLTERODINE/TOLTERODINE L-TARTRATE [Concomitant]

REACTIONS (3)
  - Small intestinal obstruction [Recovering/Resolving]
  - Diarrhoea [Recovering/Resolving]
  - Dihydropyrimidine dehydrogenase deficiency [Unknown]

NARRATIVE: CASE EVENT DATE: 20160606
